FAERS Safety Report 7203789 (Version 4)
Quarter: 2014Q2

REPORT INFORMATION
  Report Type: Report from Study
  Country: US (occurrence: US)
  Receive Date: 20091208
  Receipt Date: 20140623
  Transmission Date: 20141212
  Serious: Yes (Hospitalization)
  Sender: FDA-Public Use
  Company Number: US-BIOGENIDEC-2009BI039199

PATIENT
  Age: 45 Year
  Sex: Male

DRUGS (8)
  1. AVONEX [Suspect]
     Indication: MULTIPLE SCLEROSIS
     Route: 030
     Dates: start: 200205
  2. AVONEX [Suspect]
     Indication: MULTIPLE SCLEROSIS
     Route: 030
     Dates: start: 20020604, end: 2005
  3. AVONEX [Suspect]
     Indication: MULTIPLE SCLEROSIS
     Route: 030
     Dates: start: 2005, end: 2012
  4. AVONEX [Suspect]
     Indication: MULTIPLE SCLEROSIS
     Route: 030
     Dates: end: 20130923
  5. TECFIDERA [Concomitant]
     Route: 048
     Dates: start: 2013, end: 2013
  6. TECFIDERA [Concomitant]
     Route: 048
     Dates: start: 2013
  7. EXCEDRIN MIGRAINE [Concomitant]
     Indication: MIGRAINE
  8. FLUXETINE [Concomitant]
     Indication: DEPRESSION

REACTIONS (9)
  - Joint destruction [Recovered/Resolved with Sequelae]
  - Arthritis fungal [Recovered/Resolved with Sequelae]
  - Knee arthroplasty [Not Recovered/Not Resolved]
  - Eye haemorrhage [Recovered/Resolved]
  - Haemorrhage [Recovered/Resolved]
  - Migraine [Recovered/Resolved]
  - Arthralgia [Not Recovered/Not Resolved]
  - Asthenia [Not Recovered/Not Resolved]
  - Arthritis [Not Recovered/Not Resolved]
